FAERS Safety Report 15875699 (Version 1)
Quarter: 2019Q1

REPORT INFORMATION
  Report Type: Other
  Country: US (occurrence: US)
  Receive Date: 20190126
  Receipt Date: 20190126
  Transmission Date: 20190417
  Serious: No
  Sender: FDA-Public Use
  Company Number: US-ACORDA-ACO_154610_2018

PATIENT

DRUGS (1)
  1. AMPYRA [Suspect]
     Active Substance: DALFAMPRIDINE
     Dosage: UNK
     Route: 065

REACTIONS (6)
  - Gait inability [Unknown]
  - Balance disorder [Unknown]
  - Insomnia [Unknown]
  - Drug ineffective [Unknown]
  - Headache [Unknown]
  - Abdominal discomfort [Unknown]
